FAERS Safety Report 19260446 (Version 1)
Quarter: 2021Q2

REPORT INFORMATION
  Report Type: Spontaneous
  Country: AT (occurrence: AT)
  Receive Date: 20210514
  Receipt Date: 20210514
  Transmission Date: 20210717
  Serious: Yes (Hospitalization)
  Sender: FDA-Public Use
  Company Number: AT-ELI_LILLY_AND_COMPANY-AT202105000996

PATIENT
  Age: 68 Year
  Sex: Male

DRUGS (1)
  1. OLUMIANT [Suspect]
     Active Substance: BARICITINIB
     Indication: PRODUCT USED FOR UNKNOWN INDICATION
     Dosage: UNK, UNKNOWN
     Route: 065
     Dates: start: 20200525

REACTIONS (3)
  - Mesenteric artery thrombosis [Recovered/Resolved]
  - Rash [Recovered/Resolved]
  - Mesenteric vein thrombosis [Recovered/Resolved]

NARRATIVE: CASE EVENT DATE: 20200601
